FAERS Safety Report 5897764-7 (Version None)
Quarter: 2008Q3

REPORT INFORMATION
  Report Type: 
  Country: None (occurrence: None)
  Receive Date: 20080925
  Receipt Date: 20080918
  Transmission Date: 20090109
  Serious: Yes (Other)
  Sender: FDA-Public Use
  Company Number: PHHY2008NZ21807

PATIENT
  Sex: Male

DRUGS (5)
  1. CLOZARIL [Suspect]
     Dosage: 300 MG NOCTE
     Dates: start: 20080601
  2. BENZTROPEINE [Concomitant]
     Dosage: 1 MG, TID
  3. CLONAZEPAM [Concomitant]
     Dosage: 0.5 MG, PRN
  4. CITALOPRAM HYDROBROMIDE [Concomitant]
     Dosage: 20 MG DAILY
     Dates: start: 20080812
  5. AUGMENTIN '125' [Concomitant]

REACTIONS (3)
  - DRUG LEVEL INCREASED [None]
  - LOWER RESPIRATORY TRACT INFECTION [None]
  - PNEUMONIA [None]
